FAERS Safety Report 19225960 (Version 1)
Quarter: 2021Q2

REPORT INFORMATION
  Report Type: Spontaneous
  Country: US (occurrence: US)
  Receive Date: 20210505
  Receipt Date: 20210505
  Transmission Date: 20210717
  Serious: No
  Sender: FDA-Public Use
  Company Number: US-ROCHE-2732941

PATIENT
  Sex: Female

DRUGS (2)
  1. AVASTIN [Suspect]
     Active Substance: BEVACIZUMAB
     Indication: OVARIAN CANCER
     Dosage: STARTED LATE MARCH
     Route: 042
     Dates: start: 202003, end: 20200917
  2. MVASI [Suspect]
     Active Substance: BEVACIZUMAB-AWWB
     Indication: OVARIAN CANCER
     Route: 065
     Dates: start: 20201022

REACTIONS (1)
  - Cough [Unknown]
